FAERS Safety Report 14332081 (Version 1)
Quarter: 2017Q4

REPORT INFORMATION
  Report Type: Spontaneous
  Country: US (occurrence: US)
  Receive Date: 20171227
  Receipt Date: 20171227
  Transmission Date: 20180321
  Serious: Yes (Other)
  Sender: FDA-Public Use
  Company Number: None

PATIENT
  Age: 58 Year
  Sex: Female
  Weight: 63.9 kg

DRUGS (12)
  1. TESTOSTERONE CREME [Concomitant]
  2. CYMBALTA [Concomitant]
     Active Substance: DULOXETINE HYDROCHLORIDE
  3. PROPRANOLOL [Concomitant]
     Active Substance: PROPRANOLOL HYDROCHLORIDE
  4. KLONOPIN [Concomitant]
     Active Substance: CLONAZEPAM
  5. LUNESTA [Concomitant]
     Active Substance: ESZOPICLONE
  6. SINGULAIR [Concomitant]
     Active Substance: MONTELUKAST SODIUM
  7. CLARITIN [Concomitant]
     Active Substance: LORATADINE
  8. FAMOTIDINE. [Concomitant]
     Active Substance: FAMOTIDINE
  9. ATROVENT [Concomitant]
     Active Substance: IPRATROPIUM BROMIDE
  10. ESTROGEN PATCH [Concomitant]
     Active Substance: ESTRADIOL
  11. SPIRONOLACTONE GENERIC FOR ALDACTONE [Suspect]
     Active Substance: SPIRONOLACTONE
     Indication: ENDOLYMPHATIC HYDROPS
     Dosage: ?          QUANTITY:30 TABLET(S);?
     Route: 048
     Dates: start: 20171104, end: 20171220
  12. IPRATROPIUM BROMIDE. [Concomitant]
     Active Substance: IPRATROPIUM BROMIDE

REACTIONS (3)
  - Electrocardiogram QT prolonged [None]
  - Hypotension [None]
  - Malaise [None]

NARRATIVE: CASE EVENT DATE: 20171217
